FAERS Safety Report 24027088 (Version 2)
Quarter: 2024Q3

REPORT INFORMATION
  Report Type: Report from Study
  Country: CN (occurrence: CN)
  Receive Date: 20240628
  Receipt Date: 20240710
  Transmission Date: 20241016
  Serious: No
  Sender: ROCHE
  Company Number: CN-ROCHE-3522916

PATIENT
  Age: 60 Year
  Sex: Male
  Weight: 76.0 kg

DRUGS (12)
  1. ALECTINIB [Suspect]
     Active Substance: ALECTINIB
     Indication: Lung cancer metastatic
     Dosage: FREQUENCY 2
     Route: 048
     Dates: start: 20230217
  2. ALECTINIB [Suspect]
     Active Substance: ALECTINIB
     Dosage: PRE STUDY DOSE
     Route: 065
     Dates: start: 20230213
  3. HUI SHENG [Concomitant]
     Indication: Lung neoplasm malignant
     Route: 048
     Dates: start: 20230206
  4. VALSARTAN [Concomitant]
     Active Substance: VALSARTAN
     Indication: Hypertension
     Route: 048
     Dates: start: 2016
  5. AMLODIPINE [Concomitant]
     Active Substance: AMLODIPINE BESYLATE
     Indication: Hypertension
     Route: 048
     Dates: start: 2016
  6. METFORMIN HYDROCHLORIDE [Concomitant]
     Active Substance: METFORMIN HYDROCHLORIDE
     Indication: Diabetes mellitus
     Route: 048
     Dates: start: 2016
  7. ASPIRIN [Concomitant]
     Active Substance: ASPIRIN
     Indication: Coronary artery disease
     Route: 048
     Dates: start: 2022
  8. BENSERAZIDE HYDROCHLORIDE\LEVODOPA [Concomitant]
     Active Substance: BENSERAZIDE HYDROCHLORIDE\LEVODOPA
     Indication: Parkinson^s disease
     Route: 048
     Dates: start: 2020
  9. ROSUVASTATIN CALCIUM [Concomitant]
     Active Substance: ROSUVASTATIN CALCIUM
     Indication: Hyperlipidaemia
     Route: 048
     Dates: start: 2021
  10. KETOCONAZOLE [Concomitant]
     Active Substance: KETOCONAZOLE
     Indication: Psoriasis
     Route: 062
     Dates: start: 2021
  11. INCADRONATE DISODIUM [Concomitant]
     Active Substance: INCADRONATE DISODIUM
     Dosage: SUBSEQUENT DOSE: 18/JAN/2024, 05/FEB/2024
     Route: 042
     Dates: start: 20231114, end: 20231114
  12. COMPOUND GLYCYRRHIZA ORAL SOLUTION [Concomitant]
     Route: 048
     Dates: start: 20231207, end: 20231213

REACTIONS (2)
  - Pneumonia [Not Recovered/Not Resolved]
  - Tracheitis [Recovered/Resolved]

NARRATIVE: CASE EVENT DATE: 20231128
